FAERS Safety Report 23416966 (Version 1)
Quarter: 2024Q1

REPORT INFORMATION
  Report Type: Spontaneous
  Country: US (occurrence: US)
  Receive Date: 20240118
  Receipt Date: 20240118
  Transmission Date: 20240410
  Serious: No
  Sender: FDA-Public Use
  Company Number: US-GILEAD-2024-0658867

PATIENT

DRUGS (1)
  1. TRODELVY [Suspect]
     Active Substance: SACITUZUMAB GOVITECAN-HZIY
     Indication: Product used for unknown indication
     Dosage: UNK, 3 DOSES
     Route: 065

REACTIONS (4)
  - Fatigue [Unknown]
  - Alopecia [Unknown]
  - Taste disorder [Unknown]
  - Ill-defined disorder [Unknown]
